FAERS Safety Report 6127219-6 (Version None)
Quarter: 2009Q1

REPORT INFORMATION
  Report Type: 
  Country: None (occurrence: None)
  Receive Date: 20090320
  Receipt Date: 20090312
  Transmission Date: 20090719
  Serious: Yes (Other)
  Sender: FDA-Public Use
  Company Number: JP-GENENTECH-279273

PATIENT

DRUGS (6)
  1. MABTHERA [Suspect]
     Indication: CENTRAL NERVOUS SYSTEM LYMPHOMA
     Dosage: 375 MG/M2, Q21D
  2. METHOTREXATE SODIUM [Concomitant]
     Indication: CENTRAL NERVOUS SYSTEM LYMPHOMA
     Dosage: 1 G/M2, Q21D
  3. PIRARUBICIN [Concomitant]
     Indication: CENTRAL NERVOUS SYSTEM LYMPHOMA
     Dosage: 25 MG/M2, Q21D
  4. PROCARBAZINE [Concomitant]
     Indication: CENTRAL NERVOUS SYSTEM LYMPHOMA
     Dosage: 100 MG/M2, Q21D
  5. PREDNISONE [Concomitant]
     Indication: CENTRAL NERVOUS SYSTEM LYMPHOMA
     Dosage: 1 MG/KG, UNK
  6. LEUCOVORIN CALCIUM [Concomitant]
     Indication: PREMEDICATION

REACTIONS (1)
  - HEPATOTOXICITY [None]
